FAERS Safety Report 14278992 (Version 1)
Quarter: 2017Q4

REPORT INFORMATION
  Report Type: Spontaneous
  Country: US (occurrence: US)
  Receive Date: 20171213
  Receipt Date: 20171213
  Transmission Date: 20180321
  Serious: Yes (Other)
  Sender: FDA-Public Use
  Company Number: PHEH2017US038707

PATIENT
  Age: 71 Year
  Sex: Female

DRUGS (3)
  1. VITAMIN D3 [Concomitant]
     Active Substance: CHOLECALCIFEROL
     Indication: PRODUCT USED FOR UNKNOWN INDICATION
     Route: 065
  2. OMEGA 3 [Concomitant]
     Active Substance: OMEGA-3 FATTY ACIDS
     Indication: PRODUCT USED FOR UNKNOWN INDICATION
     Route: 065
  3. FEMARA [Suspect]
     Active Substance: LETROZOLE
     Indication: BREAST CANCER FEMALE
     Dosage: UNK
     Route: 065
     Dates: end: 201703

REACTIONS (8)
  - Metastases to liver [Unknown]
  - Metastases to lymph nodes [Unknown]
  - Fibrocystic breast disease [Unknown]
  - Malignant neoplasm progression [Unknown]
  - Bone density decreased [Unknown]
  - Breast cancer female [Unknown]
  - Hepatomegaly [Unknown]
  - Metastases to lung [Unknown]

NARRATIVE: CASE EVENT DATE: 201703
